FAERS Safety Report 7098395-6 (Version None)
Quarter: 2010Q4

REPORT INFORMATION
  Report Type: 
  Country: None (occurrence: None)
  Receive Date: 20101112
  Receipt Date: 20101108
  Transmission Date: 20110411
  Serious: No
  Sender: FDA-Public Use
  Company Number: US-PFIZER INC-2010143180

PATIENT
  Sex: Female
  Weight: 54.42 kg

DRUGS (6)
  1. CHANTIX [Suspect]
     Indication: SMOKING CESSATION THERAPY
     Dosage: 0.5 MG, 1X/DAY
     Route: 048
     Dates: start: 20101001, end: 20101001
  2. CHANTIX [Suspect]
     Dosage: 1 MG, 2X/DAY
     Route: 048
     Dates: start: 20101001, end: 20101101
  3. NEURONTIN [Concomitant]
     Dosage: UNK
  4. CALCIUM WITH VITAMIN D [Concomitant]
     Dosage: UNK
  5. VITAMIN D [Concomitant]
     Dosage: UNK
  6. VITAMIN B-12 [Concomitant]
     Dosage: UNK

REACTIONS (1)
  - NAUSEA [None]
